FAERS Safety Report 4847408-8 (Version None)
Quarter: 2005Q4

REPORT INFORMATION
  Report Type: 
  Country: None (occurrence: None)
  Receive Date: 20051205
  Receipt Date: 20051122
  Transmission Date: 20060501
  Serious: Yes (Hospitalization)
  Sender: FDA-Public Use
  Company Number: HQWYE673122NOV05

PATIENT
  Age: 41 Year
  Sex: Female

DRUGS (9)
  1. CUBICIN [Suspect]
  2. ENBREL [Suspect]
     Indication: PSORIASIS
     Dosage: 25 MG 2X PER 1 WK, SUBCUTANEOUS
     Route: 058
     Dates: end: 20050901
  3. METRONIDAZOLE [Suspect]
  4. TIGECYCLINE (TIGECYCLINE, INJECTION) [Suspect]
  5. CEFEPIME (CEFEPIME) [Concomitant]
  6. LISINOPRIL [Concomitant]
  7. METFORMIN HCL [Concomitant]
  8. PROTONIX [Concomitant]
  9. AVANDIA [Concomitant]

REACTIONS (9)
  - ABDOMINAL PAIN [None]
  - CONDITION AGGRAVATED [None]
  - ERYTHEMA [None]
  - HYSTERECTOMY [None]
  - POSTOPERATIVE FEVER [None]
  - PSORIASIS [None]
  - PYREXIA [None]
  - SWELLING [None]
  - WHITE BLOOD CELL COUNT DECREASED [None]
